FAERS Safety Report 10384434 (Version 1)
Quarter: 2014Q3

REPORT INFORMATION
  Report Type: Spontaneous
  Country: US (occurrence: US)
  Receive Date: 20140814
  Receipt Date: 20140814
  Transmission Date: 20150326
  Serious: No
  Sender: FDA-Public Use
  Company Number: US-ASTRAZENECA-2014SE57353

PATIENT
  Age: 479 Month
  Sex: Female
  Weight: 86.2 kg

DRUGS (3)
  1. PULMICORT FLEXHALER [Suspect]
     Active Substance: BUDESONIDE
     Indication: ASTHMA
     Dosage: 180 UG 2 PUFF DAILY
     Route: 055
     Dates: start: 2004
  2. DESOGEN [Concomitant]
     Active Substance: DESOGESTREL\ETHINYL ESTRADIOL
     Indication: CONTRACEPTION
     Dosage: UNKNOWN DAILY
     Route: 048
     Dates: start: 1994
  3. PULMICORT FLEXHALER [Suspect]
     Active Substance: BUDESONIDE
     Indication: ASTHMA
     Dosage: 180 UG 2 PUFF TWO TIMES A DAY
     Route: 055

REACTIONS (2)
  - Respiratory tract irritation [Unknown]
  - Off label use [Unknown]

NARRATIVE: CASE EVENT DATE: 201407
